FAERS Safety Report 7628570-0 (Version None)
Quarter: 2011Q3

REPORT INFORMATION
  Report Type: 
  Country: None (occurrence: None)
  Receive Date: 20110722
  Receipt Date: 20110713
  Transmission Date: 20111222
  Serious: Yes (Hospitalization)
  Sender: FDA-Public Use
  Company Number: GB-JNJFOC-20110605437

PATIENT
  Sex: Male
  Weight: 71 kg

DRUGS (9)
  1. FINASTERIDE [Concomitant]
     Route: 048
  2. ALENDRONATE SODIUM [Concomitant]
     Route: 048
  3. UNSPECIFED MEDICATIONS [Concomitant]
     Dosage: 10X10 CM DAILY
     Route: 061
  4. INDOMETHACIN [Concomitant]
     Route: 048
  5. FOLIC ACID [Concomitant]
     Route: 048
  6. METHOTREXATE [Suspect]
     Indication: PRODUCT USED FOR UNKNOWN INDICATION
     Route: 058
     Dates: start: 20020615
  7. SIMVASTATIN [Concomitant]
     Route: 048
  8. CALCICHEW D3 FORTE [Concomitant]
  9. INFLIXIMAB, RECOMBINANT [Suspect]
     Indication: RHEUMATOID ARTHRITIS
     Route: 042
     Dates: start: 20021003, end: 20100325

REACTIONS (1)
  - PLEURAL EFFUSION [None]
